FAERS Safety Report 9741526 (Version 2)
Quarter: 2013Q4

REPORT INFORMATION
  Report Type: Report from Study
  Country: FR (occurrence: FR)
  Receive Date: 20131210
  Receipt Date: 20131210
  Transmission Date: 20140711
  Serious: Yes (Other)
  Sender: FDA-Public Use
  Company Number: FR-ROCHE-1215839

PATIENT
  Sex: 0

DRUGS (8)
  1. PEG-INTERFERON ALFA 2A [Suspect]
     Indication: CHRONIC HEPATITIS B
     Route: 065
  2. PEG-INTERFERON ALFA 2A [Suspect]
     Indication: HIV INFECTION
  3. TENOFOVIR [Suspect]
     Indication: CHRONIC HEPATITIS B
     Route: 065
  4. TENOFOVIR [Suspect]
     Indication: HIV INFECTION
  5. EMTRICITABINE [Suspect]
     Indication: CHRONIC HEPATITIS B
     Route: 065
  6. EMTRICITABINE [Suspect]
     Indication: HIV INFECTION
  7. LAMIVUDINE [Suspect]
     Indication: CHRONIC HEPATITIS B
     Route: 065
  8. LAMIVUDINE [Suspect]
     Indication: HIV INFECTION

REACTIONS (1)
  - Mental disorder [Unknown]
